FAERS Safety Report 5697935-9 (Version None)
Quarter: 2008Q2

REPORT INFORMATION
  Report Type: 
  Country: None (occurrence: None)
  Receive Date: 20080408
  Receipt Date: 20060307
  Transmission Date: 20081010
  Serious: Yes (Hospitalization)
  Sender: FDA-Public Use
  Company Number: GB-JNJFOC-20080401364

PATIENT
  Age: 79 Year
  Sex: Male

DRUGS (4)
  1. IBUPROFEN [Suspect]
     Indication: BACK PAIN
  2. FUROSEMIDE [Suspect]
     Indication: CARDIAC FAILURE CONGESTIVE
  3. DIGOXIN [Concomitant]
     Indication: CARDIAC FAILURE CONGESTIVE
  4. ISMN [Concomitant]
     Indication: CARDIAC FAILURE CONGESTIVE

REACTIONS (4)
  - ASCITES [None]
  - BLOOD CREATININE INCREASED [None]
  - BLOOD UREA INCREASED [None]
  - CARDIAC FAILURE [None]
